FAERS Safety Report 5451343-4 (Version None)
Quarter: 2007Q3

REPORT INFORMATION
  Report Type: 
  Country: None (occurrence: None)
  Receive Date: 20070913
  Receipt Date: 20070905
  Transmission Date: 20080115
  Serious: Yes (Other)
  Sender: FDA-Public Use
  Company Number: JP-ASTRAZENECA-2007AP05586

PATIENT
  Age: 60 Year
  Sex: Female

DRUGS (4)
  1. CRESTOR [Suspect]
     Indication: HYPERCHOLESTEROLAEMIA
     Route: 048
  2. FOSAMAC [Concomitant]
     Route: 048
  3. ASPARA-CA [Concomitant]
     Route: 048
  4. MEDROL [Concomitant]
     Route: 048

REACTIONS (1)
  - DRUG ERUPTION [None]
